FAERS Safety Report 4573084-8 (Version None)
Quarter: 2005Q1

REPORT INFORMATION
  Report Type: 
  Country: None (occurrence: None)
  Receive Date: 20050118
  Receipt Date: 20041004
  Transmission Date: 20050727
  Serious: Yes (Other)
  Sender: FDA-Public Use
  Company Number: HQWYE572806OCT04

PATIENT
  Sex: Female

DRUGS (2)
  1. PREMPHASE 14/14 [Suspect]
  2. CENESTIN [Suspect]

REACTIONS (1)
  - OVARIAN CANCER [None]
